FAERS Safety Report 8552466-3 (Version None)
Quarter: 2012Q3

REPORT INFORMATION
  Report Type: 
  Country: None (occurrence: None)
  Receive Date: 20120731
  Receipt Date: 20120720
  Transmission Date: 20120928
  Serious: Yes (Hospitalization)
  Sender: FDA-Public Use
  Company Number: US-BAYER-2012-031658

PATIENT
  Age: 26 Year
  Sex: Female
  Weight: 136.5 kg

DRUGS (21)
  1. MARIJUANA [Concomitant]
  2. MARIJUANA [Concomitant]
  3. HYDROCODONE BITARTRATE + ACETAMINOPHEN [Concomitant]
  4. BUPROPION HCL [Concomitant]
  5. LORAZEPAM [Concomitant]
  6. LEXAPRO [Concomitant]
  7. CLINDAMYCIN [Concomitant]
     Dosage: UNK
     Dates: start: 20081110
  8. BACLOFEN [Concomitant]
  9. YAZ [Suspect]
     Indication: ACNE
     Dosage: UNK
     Dates: start: 20060101, end: 20090101
  10. LEVOTHYROXINE SODIUM [Concomitant]
  11. INTERFERON BETA-1A [Concomitant]
  12. KLONOPIN [Concomitant]
  13. HYDROCODONE [Concomitant]
  14. ESCITALOPRAM [Concomitant]
  15. IBUPROFEN [Concomitant]
  16. CANNABIS [Concomitant]
  17. TYLENOL (CAPLET) [Concomitant]
  18. IOTROLAN [Concomitant]
  19. ABILIFY [Concomitant]
  20. HYDROXYZINE [Concomitant]
  21. SULFAMETHOXAZOLE AND TRIMETHOPRIM [Concomitant]
     Dosage: UNK
     Dates: start: 20101204

REACTIONS (4)
  - PULMONARY EMBOLISM [None]
  - DEEP VEIN THROMBOSIS [None]
  - INJURY [None]
  - PAIN [None]
